FAERS Safety Report 5054741-6 (Version None)
Quarter: 2006Q3

REPORT INFORMATION
  Report Type: 
  Country: None (occurrence: None)
  Receive Date: 20060719
  Receipt Date: 20060706
  Transmission Date: 20061208
  Serious: Yes (Hospitalization)
  Sender: FDA-Public Use
  Company Number: PHBS2006IT10177

PATIENT
  Age: 59 Year
  Sex: Female

DRUGS (3)
  1. CYCLOSPORINE [Suspect]
     Indication: RENAL TRANSPLANT
     Dosage: 8 MG/KG/D
     Dates: start: 19940501, end: 20000101
  2. AZATHIOPRINE [Suspect]
     Indication: RENAL TRANSPLANT
     Dosage: 125 MG/D
     Dates: end: 20000401
  3. PREDNISONE (NGX) [Suspect]
     Indication: RENAL TRANSPLANT
     Dosage: 120 MG/D

REACTIONS (10)
  - ANGINA UNSTABLE [None]
  - AORTIC DILATATION [None]
  - CORONARY ARTERY DISEASE [None]
  - CORONARY ARTERY OCCLUSION [None]
  - CORONARY ARTERY STENOSIS [None]
  - HYPERLIPIDAEMIA [None]
  - HYPERTENSION [None]
  - MYOCARDIAL ISCHAEMIA [None]
  - PERCUTANEOUS CORONARY INTERVENTION [None]
  - PROTEINURIA [None]
